FAERS Safety Report 16204554 (Version 2)
Quarter: 2019Q4

REPORT INFORMATION
  Report Type: Spontaneous
  Country: TW (occurrence: TW)
  Receive Date: 20190416
  Receipt Date: 20191009
  Transmission Date: 20200122
  Serious: Yes (Other)
  Sender: FDA-Public Use
  Company Number: TW-PFIZER INC-2019158338

PATIENT
  Age: 66 Year
  Sex: Female

DRUGS (13)
  1. AFINITOR [Concomitant]
     Active Substance: EVEROLIMUS
     Indication: BREAST CANCER FEMALE
     Dosage: UNK
     Dates: start: 20181009
  2. AFINITOR [Concomitant]
     Active Substance: EVEROLIMUS
     Dosage: 5 MG, 2 TAB QD FOR 14 DAYS
     Dates: start: 20190227
  3. IBRANCE [Suspect]
     Active Substance: PALBOCICLIB
     Dosage: 125 MG, 1 CAP QD FOR 7 DAYS
     Dates: start: 20190403
  4. AROMASIN [Suspect]
     Active Substance: EXEMESTANE
     Dosage: 25 MG, 1 TAB QD FOR 7 DAYS
     Dates: start: 20190327
  5. IBRANCE [Suspect]
     Active Substance: PALBOCICLIB
     Dosage: 125 MG, 1 CAP QD FOR 14 DAYS
     Dates: start: 20190130
  6. IBRANCE [Suspect]
     Active Substance: PALBOCICLIB
     Dosage: 125 MG, 1 CAP QD FOR 7 DAYS
     Dates: start: 20190327
  7. IBRANCE [Suspect]
     Active Substance: PALBOCICLIB
     Indication: BREAST CANCER FEMALE
     Dosage: UNK
     Dates: start: 20181016
  8. AROMASIN [Suspect]
     Active Substance: EXEMESTANE
     Indication: BREAST CANCER FEMALE
     Dosage: UNK
     Dates: start: 20180904
  9. AROMASIN [Suspect]
     Active Substance: EXEMESTANE
     Dosage: 25 MG, 1 TAB QD FOR 14 DAYS
     Dates: start: 20190130
  10. AROMASIN [Suspect]
     Active Substance: EXEMESTANE
     Dosage: 25 MG, 1 TAB QD FOR 14 DAYS
     Dates: start: 20190403
  11. AFINITOR [Concomitant]
     Active Substance: EVEROLIMUS
     Dosage: 5 MG, 2 TAB QD FOR 14 DAYS
     Dates: start: 20190130
  12. AROMASIN [Suspect]
     Active Substance: EXEMESTANE
     Dosage: 25 MG, 1 TAB QD FOR 14 DAYS
     Dates: start: 20190227
  13. IBRANCE [Suspect]
     Active Substance: PALBOCICLIB
     Dosage: 125 MG, 1 CAP QD FOR 14 DAYS
     Dates: start: 20190227

REACTIONS (2)
  - Carcinoembryonic antigen increased [Unknown]
  - Carbohydrate antigen 15-3 increased [Unknown]

NARRATIVE: CASE EVENT DATE: 201810
